FAERS Safety Report 4884852-7 (Version None)
Quarter: 2006Q1

REPORT INFORMATION
  Report Type: 
  Country: None (occurrence: None)
  Receive Date: 20060119
  Receipt Date: 20041203
  Transmission Date: 20060701
  Serious: Yes (Hospitalization)
  Sender: FDA-Public Use
  Company Number: GB-GLAXOSMITHKLINE-B0361141A

PATIENT
  Sex: Female

DRUGS (2)
  1. PAROXETINE HYDROCHLORIDE [Suspect]
     Indication: DEPRESSION
     Route: 065
     Dates: start: 19980921
  2. DIAZEPAM [Concomitant]
     Route: 065

REACTIONS (3)
  - ILL-DEFINED DISORDER [None]
  - MEMORY IMPAIRMENT [None]
  - SUICIDAL IDEATION [None]
